FAERS Safety Report 17745174 (Version 1)
Quarter: 2020Q2

REPORT INFORMATION
  Report Type: Spontaneous
  Country: ES (occurrence: ES)
  Receive Date: 20200504
  Receipt Date: 20200504
  Transmission Date: 20200714
  Serious: Yes (Hospitalization)
  Sender: FDA-Public Use
  Company Number: ES-ABBVIE-20K-144-3388205-00

PATIENT
  Age: 68 Year
  Sex: Female

DRUGS (3)
  1. KALETRA [Suspect]
     Active Substance: LOPINAVIR\RITONAVIR
     Indication: COVID-19
     Route: 048
     Dates: start: 20200330, end: 20200403
  2. DOLQUINE [Suspect]
     Active Substance: HYDROXYCHLOROQUINE SULFATE
     Indication: COVID-19
     Route: 048
     Dates: start: 20200330, end: 20200403
  3. CICLOSPORINA [Suspect]
     Active Substance: CYCLOSPORINE
     Indication: COVID-19
     Route: 048
     Dates: start: 20200330, end: 20200403

REACTIONS (2)
  - Renal impairment [Recovered/Resolved]
  - Hepatitis [Recovering/Resolving]

NARRATIVE: CASE EVENT DATE: 20200403
